FAERS Safety Report 16285782 (Version 1)
Quarter: 2019Q2

REPORT INFORMATION
  Report Type: Spontaneous
  Country: US (occurrence: US)
  Receive Date: 20190402
  Receipt Date: 20190402
  Transmission Date: 20190711
  Serious: No
  Sender: FDA-Public Use
  Company Number: None

PATIENT
  Age: 59 Year
  Sex: Female

DRUGS (1)
  1. HUMIRA [Suspect]
     Active Substance: ADALIMUMAB
     Indication: HIDRADENITIS
     Route: 058
     Dates: start: 20180727

REACTIONS (5)
  - Therapy cessation [None]
  - Pain in extremity [None]
  - Swelling [None]
  - Erythema [None]
  - Arthralgia [None]

NARRATIVE: CASE EVENT DATE: 20190311
